FAERS Safety Report 9228309 (Version 1)
Quarter: 2013Q2

REPORT INFORMATION
  Report Type: Spontaneous
  Country: DE (occurrence: None)
  Receive Date: 20130410
  Receipt Date: 20130410
  Transmission Date: 20140414
  Serious: Yes (Other)
  Sender: FDA-Public Use
  Company Number: 7200281

PATIENT
  Sex: Female

DRUGS (1)
  1. JODTHYROX [Suspect]
     Route: 048

REACTIONS (2)
  - Memory impairment [None]
  - Thyroid function test abnormal [None]
